FAERS Safety Report 6307705-6 (Version None)
Quarter: 2009Q3

REPORT INFORMATION
  Report Type: 
  Country: None (occurrence: None)
  Receive Date: 20090811
  Receipt Date: 20090727
  Transmission Date: 20100115
  Serious: Yes (Other)
  Sender: FDA-Public Use
  Company Number: SPI200900240

PATIENT
  Age: 70 Year
  Sex: Female

DRUGS (1)
  1. AMITIZA [Suspect]
     Indication: GASTROINTESTINAL OBSTRUCTION
     Dosage: SINGLE, OTHER
     Dates: start: 20090701, end: 20090701

REACTIONS (1)
  - NASOGASTRIC OUTPUT HIGH [None]
